FAERS Safety Report 9149258 (Version 1)
Quarter: 2013Q1

REPORT INFORMATION
  Report Type: Spontaneous
  Country: US (occurrence: US)
  Receive Date: 20130308
  Receipt Date: 20130308
  Transmission Date: 20140127
  Serious: Yes (Other)
  Sender: FDA-Public Use
  Company Number: US-BRISTOL-MYERS SQUIBB COMPANY-17433764

PATIENT
  Age: 30 Year
  Sex: Female
  Weight: 59.86 kg

DRUGS (1)
  1. ABILIFY [Suspect]
     Indication: DEPRESSION
     Dates: start: 201009

REACTIONS (2)
  - Nausea [Unknown]
  - Large intestinal haemorrhage [Unknown]
